FAERS Safety Report 4953793-9 (Version None)
Quarter: 2006Q1

REPORT INFORMATION
  Report Type: 
  Country: None (occurrence: None)
  Receive Date: 20060324
  Receipt Date: 20060324
  Transmission Date: 20060701
  Serious: Yes (Hospitalization)
  Sender: FDA-Public Use
  Company Number: None

PATIENT
  Sex: Male
  Weight: 61.3 kg

DRUGS (7)
  1. CETUXIMAB 2MG/ML BMS [Suspect]
     Indication: LARYNGEAL CANCER STAGE IV
     Dosage: 356MG ONCE IV DRIP
     Route: 041
     Dates: start: 20060321, end: 20060321
  2. CIMETIDINE [Concomitant]
  3. PREDNISONE [Concomitant]
  4. METHYLPREDNISOLONE [Concomitant]
  5. DIPHENHYDRAMINE [Concomitant]
  6. ZOFRAN [Concomitant]
  7. DECADRON SRC [Concomitant]

REACTIONS (6)
  - DYSPNOEA [None]
  - FEELING HOT [None]
  - FIBRIN D DIMER INCREASED [None]
  - HEART RATE INCREASED [None]
  - PRURITUS [None]
  - RESPIRATORY RATE INCREASED [None]
